FAERS Safety Report 8449379-4 (Version None)
Quarter: 2012Q2

REPORT INFORMATION
  Report Type: 
  Country: None (occurrence: None)
  Receive Date: 20120619
  Receipt Date: 20120613
  Transmission Date: 20120825
  Serious: Yes (Other)
  Sender: FDA-Public Use
  Company Number: GB-ROCHE-1079457

PATIENT
  Sex: Female

DRUGS (6)
  1. XOLAIR [Suspect]
     Indication: ASTHMA
     Dates: start: 20090901, end: 20090901
  2. XOLAIR [Suspect]
     Dates: start: 20111201, end: 20120101
  3. FLUTICASONE PROPIONATE/SALMETEROL [Concomitant]
  4. PREDNISONE [Concomitant]
  5. VENTOLIN [Concomitant]
  6. CALCIUM [Concomitant]

REACTIONS (5)
  - ARTHRALGIA [None]
  - MYALGIA [None]
  - ASTHMA [None]
  - DYSPNOEA [None]
  - WHEEZING [None]
